FAERS Safety Report 4360079-2 (Version None)
Quarter: 2004Q2

REPORT INFORMATION
  Report Type: 
  Country: None (occurrence: None)
  Receive Date: 20040519
  Receipt Date: 20040507
  Transmission Date: 20050107
  Serious: Yes (Hospitalization)
  Sender: FDA-Public Use
  Company Number: US-JNJFOC-20040302761

PATIENT
  Sex: Female

DRUGS (21)
  1. RISPERDAL [Suspect]
     Indication: SCHIZOAFFECTIVE DISORDER
     Dosage: 1 IN 4 HOURS AS NEEDED
     Route: 049
  2. CLOZAPINE [Suspect]
     Indication: SCHIZOAFFECTIVE DISORDER
     Route: 049
  3. CELEXA [Concomitant]
  4. IBUPROFEN [Concomitant]
  5. NORVASC [Concomitant]
  6. PREVACID [Concomitant]
  7. SPIRONOLACTONE [Concomitant]
  8. DETROL LA [Concomitant]
  9. DEMODEX [Concomitant]
  10. THEOPHYLLINE [Concomitant]
  11. SINGULAIR [Concomitant]
  12. QUININE SULFATE [Concomitant]
  13. TRAZODONE HCL [Concomitant]
  14. VALPROIC ACID [Concomitant]
  15. FLOVENT [Concomitant]
  16. TYLENOL [Concomitant]
  17. VISTARIL [Concomitant]
  18. GUAIFENESIN [Concomitant]
  19. DUONEB [Concomitant]
  20. DUONEB [Concomitant]
  21. ALBUTEROL [Concomitant]

REACTIONS (20)
  - ABDOMINAL PAIN [None]
  - BLOOD ALKALINE PHOSPHATASE INCREASED [None]
  - BLOOD CHLORIDE DECREASED [None]
  - BLOOD GLUCOSE INCREASED [None]
  - BLOOD POTASSIUM DECREASED [None]
  - BLOOD PRESSURE DIASTOLIC DECREASED [None]
  - CHILLS [None]
  - HEPATOMEGALY [None]
  - HYPERHIDROSIS [None]
  - INTERNAL HERNIA [None]
  - LEUKOCYTOSIS [None]
  - LOWER RESPIRATORY TRACT INFECTION [None]
  - NEUROLEPTIC MALIGNANT SYNDROME [None]
  - OXYGEN SATURATION DECREASED [None]
  - PROCEDURAL SITE REACTION [None]
  - PROTEIN TOTAL INCREASED [None]
  - PYREXIA [None]
  - RESPIRATORY RATE INCREASED [None]
  - URINARY TRACT INFECTION [None]
  - VOMITING [None]
